FAERS Safety Report 12659033 (Version 1)
Quarter: 2016Q3

REPORT INFORMATION
  Report Type: Spontaneous
  Country: DK (occurrence: DK)
  Receive Date: 20160817
  Receipt Date: 20160817
  Transmission Date: 20161109
  Serious: Yes (Life-Threatening, Hospitalization)
  Sender: FDA-Public Use
  Company Number: DK-TEVA-683050ACC

PATIENT
  Age: 32 Year
  Sex: Female

DRUGS (3)
  1. DOLOL [Concomitant]
     Active Substance: TRAMADOL
     Indication: BACK PAIN
     Dosage: 50 MILLIGRAM DAILY;
     Route: 048
     Dates: start: 20151113
  2. IBUPROFEN ^ACTAVIS^ [Suspect]
     Active Substance: IBUPROFEN
     Indication: BACK PAIN
     Dosage: 1600 MILLIGRAM DAILY; STRENGTH : 400 MG.
     Route: 048
     Dates: start: 20151106, end: 20151117
  3. PANODIL [Concomitant]
     Active Substance: ACETAMINOPHEN
     Indication: BACK PAIN
     Dates: start: 20151108, end: 20151117

REACTIONS (4)
  - Gastric ulcer surgery [Recovered/Resolved]
  - Vomiting [Unknown]
  - Duodenal ulcer haemorrhage [Recovered/Resolved with Sequelae]
  - Diarrhoea haemorrhagic [Unknown]

NARRATIVE: CASE EVENT DATE: 20151115
